FAERS Safety Report 9644970 (Version 1)
Quarter: 2013Q4

REPORT INFORMATION
  Report Type: Spontaneous
  Country: US (occurrence: US)
  Receive Date: 20131025
  Receipt Date: 20131025
  Transmission Date: 20140711
  Serious: Yes (Hospitalization)
  Sender: FDA-Public Use
  Company Number: US-PFIZER INC-2013303364

PATIENT
  Age: 37 Year
  Sex: Female
  Weight: 72.56 kg

DRUGS (2)
  1. LYRICA [Suspect]
     Indication: EPILEPSY
     Dosage: 200 MG, DAILY
     Dates: start: 201303, end: 2013
  2. LYRICA [Suspect]
     Indication: ANXIETY

REACTIONS (5)
  - Off label use [Unknown]
  - Tremor [Recovered/Resolved]
  - Confusional state [Recovered/Resolved]
  - Muscular weakness [Recovered/Resolved]
  - Eye disorder [Recovered/Resolved]
